FAERS Safety Report 9704317 (Version 1)
Quarter: 2013Q4

REPORT INFORMATION
  Report Type: Spontaneous
  Country: US (occurrence: None)
  Receive Date: 20131121
  Receipt Date: 20131121
  Transmission Date: 20140711
  Serious: Yes (Other)
  Sender: FDA-Public Use
  Company Number: None

PATIENT
  Age: 64 Year
  Sex: Female

DRUGS (3)
  1. EZETIMIBE [Suspect]
     Route: 048
     Dates: end: 20111025
  2. WARFARIN [Concomitant]
  3. LEVOTHYROXINE [Concomitant]

REACTIONS (6)
  - Musculoskeletal disorder [None]
  - Arthralgia [None]
  - Pain in extremity [None]
  - Musculoskeletal pain [None]
  - Pain in extremity [None]
  - Arthralgia [None]
